FAERS Safety Report 18447125 (Version 1)
Quarter: 2020Q4

REPORT INFORMATION
  Report Type: Spontaneous
  Country: DE (occurrence: DE)
  Receive Date: 20201030
  Receipt Date: 20201030
  Transmission Date: 20210114
  Serious: Yes (Other)
  Sender: FDA-Public Use
  Company Number: DE-ALLERGAN-UKP02000195

PATIENT
  Sex: Male

DRUGS (1)
  1. MESALAZINE - BP [Suspect]
     Active Substance: MESALAMINE
     Indication: CROHN^S DISEASE
     Dosage: 500 MG, UNKNOWN
     Route: 048
     Dates: start: 20020502, end: 20200501

REACTIONS (3)
  - Rash pustular [Recovered/Resolved]
  - Photosensitivity reaction [Recovered/Resolved]
  - Urticaria [Recovered/Resolved]

NARRATIVE: CASE EVENT DATE: 200205
